FAERS Safety Report 4548419-2 (Version None)
Quarter: 2005Q1

REPORT INFORMATION
  Report Type: 
  Country: None (occurrence: None)
  Receive Date: 20050106
  Receipt Date: 20050106
  Transmission Date: 20050727
  Serious: Yes (Other)
  Sender: FDA-Public Use
  Company Number: None

PATIENT
  Age: 54 Year
  Sex: Female
  Weight: 68.9467 kg

DRUGS (8)
  1. OXALIPLATIN [Suspect]
     Indication: OVARIAN CANCER
     Dosage: 115 MG Q 3 WEEK IV
     Route: 042
     Dates: start: 20040901
  2. OXALIPLATIN [Suspect]
     Indication: OVARIAN CANCER
     Dosage: 115 MG Q 3 WEEK IV
     Route: 042
     Dates: start: 20041004
  3. OXALIPLATIN [Suspect]
     Indication: OVARIAN CANCER
     Dosage: 115 MG Q 3 WEEK IV
     Route: 042
     Dates: start: 20041213
  4. EPO 906 [Suspect]
     Dosage: 2.1 MG X 2 WK Q 3 WK IV
     Route: 042
     Dates: start: 20040901
  5. EPO 906 [Suspect]
     Dosage: 2.1 MG X 2 WK Q 3 WK IV
     Route: 042
     Dates: start: 20041004
  6. EPO 906 [Suspect]
     Dosage: 2.1 MG X 2 WK Q 3 WK IV
     Route: 042
     Dates: start: 20041011
  7. EPO 906 [Suspect]
     Dosage: 2.1 MG X 2 WK Q 3 WK IV
     Route: 042
     Dates: start: 20041213
  8. EPO 906 [Suspect]
     Dosage: 2.1 MG X 2 WK Q 3 WK IV
     Route: 042
     Dates: start: 20041220

REACTIONS (2)
  - HYPERSENSITIVITY [None]
  - INFUSION RELATED REACTION [None]
